FAERS Safety Report 9002589 (Version 2)
Quarter: 2013Q1

REPORT INFORMATION
  Report Type: Report from Study
  Country: DE (occurrence: DE)
  Receive Date: 20130107
  Receipt Date: 20130219
  Transmission Date: 20140127
  Serious: Yes (Hospitalization)
  Sender: FDA-Public Use
  Company Number: DE-ABBOTT-12P-062-1029139-00

PATIENT
  Sex: Female

DRUGS (4)
  1. HUMIRA PEN [Suspect]
     Indication: PSORIASIS
     Route: 058
     Dates: start: 20120615, end: 20121207
  2. METHOTREXATE [Concomitant]
     Indication: PRODUCT USED FOR UNKNOWN INDICATION
  3. PANTOPRAZOLE [Concomitant]
     Indication: PRODUCT USED FOR UNKNOWN INDICATION
  4. ISOKET [Concomitant]
     Indication: PRODUCT USED FOR UNKNOWN INDICATION

REACTIONS (3)
  - Arthralgia [Recovering/Resolving]
  - Local swelling [Recovering/Resolving]
  - Tuberculosis [Recovering/Resolving]
